FAERS Safety Report 13620552 (Version 1)
Quarter: 2017Q2

REPORT INFORMATION
  Report Type: Spontaneous
  Country: US (occurrence: US)
  Receive Date: 20170607
  Receipt Date: 20170607
  Transmission Date: 20170830
  Serious: No
  Sender: FDA-Public Use
  Company Number: US-TEVA-716244USA

PATIENT
  Sex: Female

DRUGS (1)
  1. CLARITHROMYCIN. [Suspect]
     Active Substance: CLARITHROMYCIN
     Dosage: 500 MILLIGRAM DAILY;

REACTIONS (3)
  - Adverse drug reaction [Unknown]
  - Malaise [Recovered/Resolved]
  - Erythema [Recovered/Resolved]
